FAERS Safety Report 9512658 (Version 3)
Quarter: 2014Q1

REPORT INFORMATION
  Report Type: Spontaneous
  Country: US (occurrence: US)
  Receive Date: 20130910
  Receipt Date: 20140102
  Transmission Date: 20141002
  Serious: Yes (Death, Hospitalization, Other)
  Sender: FDA-Public Use
  Company Number: US-ASTELLAS-2013US006911

PATIENT
  Age: 73 Year
  Sex: Male

DRUGS (1)
  1. XTANDI [Suspect]
     Indication: PROSTATE CANCER METASTATIC
     Dosage: 160 MG, UID/QD
     Route: 048
     Dates: start: 20130502, end: 20130530

REACTIONS (8)
  - Malignant neoplasm progression [Fatal]
  - Metastases to spine [Unknown]
  - Back pain [Unknown]
  - Arthralgia [Unknown]
  - Nausea [Recovering/Resolving]
  - Malaise [Unknown]
  - Cervical vertebral fracture [Unknown]
  - Pain [Not Recovered/Not Resolved]
